FAERS Safety Report 10218910 (Version 1)
Quarter: 2014Q2

REPORT INFORMATION
  Report Type: Spontaneous
  Country: US (occurrence: None)
  Receive Date: 20140604
  Receipt Date: 20140604
  Transmission Date: 20141212
  Serious: No
  Sender: FDA-Public Use
  Company Number: None

PATIENT
  Age: 48 Year
  Sex: Female
  Weight: 54.43 kg

DRUGS (1)
  1. TOPIRAMATE [Suspect]
     Indication: MIGRAINE
     Dosage: 1 PILL AT BEDTIME
     Route: 048
     Dates: start: 20140417, end: 20140501

REACTIONS (5)
  - Dysgeusia [None]
  - Muscle twitching [None]
  - Vision blurred [None]
  - Muscle spasms [None]
  - Heart rate increased [None]
